FAERS Safety Report 16751048 (Version 1)
Quarter: 2019Q3

REPORT INFORMATION
  Report Type: Report from Study
  Country: BE (occurrence: BE)
  Receive Date: 20190828
  Receipt Date: 20190828
  Transmission Date: 20191005
  Serious: Yes (Death, Hospitalization)
  Sender: FDA-Public Use
  Company Number: BE-MYLANLABS-2019M1080719

PATIENT
  Age: 70 Year
  Sex: Female
  Weight: 55 kg

DRUGS (19)
  1. 5-FU                               /00098801/ [Suspect]
     Active Substance: FLUOROURACIL
     Indication: PANCREATIC CARCINOMA METASTATIC
     Dosage: 3682 MILLIGRAM, Q2W
     Route: 042
     Dates: start: 20181122, end: 20181122
  2. 5-FU                               /00098801/ [Suspect]
     Active Substance: FLUOROURACIL
     Dosage: 3682 MILLIGRAM, Q2W,3682 MG, QCY
     Route: 042
     Dates: start: 20181224, end: 20181224
  3. PALONOSETRON. [Concomitant]
     Active Substance: PALONOSETRON HYDROCHLORIDE
     Indication: PROPHYLAXIS
     Dosage: UNK
     Route: 065
     Dates: start: 20181122, end: 20181220
  4. OXALIPLATIN. [Suspect]
     Active Substance: OXALIPLATIN
     Indication: PANCREATIC CARCINOMA METASTATIC
     Dosage: 130 MILLIGRAM, Q2W
     Route: 042
     Dates: start: 20181122, end: 20181122
  5. 5-FU                               /00098801/ [Suspect]
     Active Substance: FLUOROURACIL
     Dosage: 613 MILLIGRAM, Q2W,613 MG, QOW, IN EVERY 1 DAYS
     Route: 042
     Dates: start: 20181122, end: 20181122
  6. DEXAMETHASONE. [Concomitant]
     Active Substance: DEXAMETHASONE
     Indication: PROPHYLAXIS
  7. LEUCOVORIN                         /00566702/ [Suspect]
     Active Substance: LEUCOVORIN
     Dosage: 613 MILLIGRAM, CYCLE
     Route: 042
     Dates: start: 20181220, end: 20181220
  8. 5-FU                               /00098801/ [Suspect]
     Active Substance: FLUOROURACIL
     Dosage: 613 MILLIGRAM, Q2W,613 MG, QCY
     Route: 040
     Dates: start: 20181222, end: 20181222
  9. DEXAMETHASONE. [Concomitant]
     Active Substance: DEXAMETHASONE
     Indication: DECREASED APPETITE
     Dosage: UNK
     Route: 065
     Dates: start: 20181206, end: 20181223
  10. LEVOTHYROXINE. [Concomitant]
     Active Substance: LEVOTHYROXINE
     Indication: HYPOTHYROIDISM
     Dosage: UNK
  11. OXALIPLATIN. [Suspect]
     Active Substance: OXALIPLATIN
     Dosage: 130 MILLIGRAM, Q2W
     Route: 042
     Dates: start: 20181220, end: 20181220
  12. ALIZAPRIDE [Concomitant]
     Active Substance: ALIZAPRIDE
     Indication: PROPHYLAXIS
     Dosage: UNK
     Route: 065
     Dates: start: 20181206, end: 20181220
  13. FUCICORT [Concomitant]
     Active Substance: BETAMETHASONE VALERATE\FUSIDIC ACID
     Indication: ERYTHEMA
     Dosage: UNK
     Route: 065
     Dates: start: 20181126
  14. ARANESP [Concomitant]
     Active Substance: DARBEPOETIN ALFA
     Indication: ANAEMIA
     Dosage: UNK
     Route: 065
     Dates: start: 20181206
  15. DAFALGAN [Concomitant]
     Active Substance: ACETAMINOPHEN
     Indication: PERIARTHRITIS
     Dosage: UNK
     Route: 065
     Dates: start: 20181107
  16. PANTOPRAZOLE SODIUM SESQUIHYDRATE [Concomitant]
     Active Substance: PANTOPRAZOLE SODIUM
     Indication: PROPHYLAXIS
     Dosage: UNK
     Dates: start: 20180927
  17. LEUCOVORIN                         /00566702/ [Suspect]
     Active Substance: LEUCOVORIN
     Indication: PANCREATIC CARCINOMA METASTATIC
     Dosage: 613 MILLIGRAM, Q2W
     Route: 042
     Dates: start: 20181122, end: 20181122
  18. LIPANTHYL [Concomitant]
     Active Substance: FENOFIBRATE
     Indication: HYPERCHOLESTEROLAEMIA
     Dosage: UNK
  19. PROMAGNOR [Concomitant]
     Active Substance: MAGNESIUM
     Indication: MUSCLE SPASMS
     Dosage: UNK

REACTIONS (3)
  - Death [Fatal]
  - General physical condition abnormal [Not Recovered/Not Resolved]
  - Cerebrovascular accident [Not Recovered/Not Resolved]

NARRATIVE: CASE EVENT DATE: 20181225
